FAERS Safety Report 10931919 (Version 1)
Quarter: 2015Q1

REPORT INFORMATION
  Report Type: Report from Study
  Country: US (occurrence: US)
  Receive Date: 20150319
  Receipt Date: 20150319
  Transmission Date: 20150721
  Serious: Yes (Hospitalization)
  Sender: FDA-Public Use
  Company Number: US-ACTELION-A-NJ2015-114643

PATIENT
  Age: 57 Year
  Sex: Male

DRUGS (12)
  1. IRON [Concomitant]
     Active Substance: IRON
  2. PROTONIX [Concomitant]
     Active Substance: PANTOPRAZOLE SODIUM
  3. MACITENTAN [Suspect]
     Active Substance: MACITENTAN
     Indication: PULMONARY HYPERTENSION
     Dosage: 10 MG, UNK
     Route: 048
     Dates: start: 20140327
  4. FUROSEMIDE. [Concomitant]
     Active Substance: FUROSEMIDE
  5. SILDENAFIL. [Concomitant]
     Active Substance: SILDENAFIL
  6. TOPROL XL [Concomitant]
     Active Substance: METOPROLOL SUCCINATE
  7. LIPITOR [Concomitant]
     Active Substance: ATORVASTATIN CALCIUM
  8. TYVASO [Concomitant]
     Active Substance: TREPROSTINIL
  9. CLARITIN [Concomitant]
     Active Substance: LORATADINE
  10. LEVOTHYROXINE [Concomitant]
     Active Substance: LEVOTHYROXINE
  11. BABY ASPIRIN [Concomitant]
     Active Substance: ASPIRIN
  12. POTASSIUM [Concomitant]
     Active Substance: POTASSIUM

REACTIONS (7)
  - Transient ischaemic attack [Unknown]
  - Gastrointestinal haemorrhage [Not Recovered/Not Resolved]
  - Throat irritation [Unknown]
  - Haemoglobin decreased [Unknown]
  - Faeces discoloured [Not Recovered/Not Resolved]
  - Dyspnoea [Unknown]
  - Haematochezia [Not Recovered/Not Resolved]

NARRATIVE: CASE EVENT DATE: 20150306
